FAERS Safety Report 24960291 (Version 1)
Quarter: 2025Q1

REPORT INFORMATION
  Report Type: Spontaneous
  Country: US (occurrence: None)
  Receive Date: 20250211
  Receipt Date: 20250211
  Transmission Date: 20250408
  Serious: Yes (Other)
  Sender: FDA-CTU
  Company Number: None

PATIENT
  Age: 22 Year
  Sex: Female
  Weight: 90 kg

DRUGS (5)
  1. BUPROPION HYDROCHLORIDE EXTENDED RELEASE [Suspect]
     Active Substance: BUPROPION HYDROCHLORIDE
     Indication: Depression
     Route: 048
     Dates: start: 20250201, end: 20250211
  2. BUSPIRONE [Concomitant]
     Active Substance: BUSPIRONE HYDROCHLORIDE
  3. BERBERINE [Concomitant]
     Active Substance: BERBERINE
  4. CRANBERRY SUPPLEMENTS [Concomitant]
  5. PHYSICIAN^S CHOICE PROBIOTICS [Concomitant]

REACTIONS (1)
  - Vulvovaginal mycotic infection [None]

NARRATIVE: CASE EVENT DATE: 20250207
